FAERS Safety Report 7622621-5 (Version None)
Quarter: 2011Q3

REPORT INFORMATION
  Report Type: 
  Country: None (occurrence: None)
  Receive Date: 20110701
  Receipt Date: 20100921
  Transmission Date: 20111222
  Serious: Yes (Other)
  Sender: FDA-Public Use
  Company Number: 7018497

PATIENT
  Age: 45 Year
  Sex: Female

DRUGS (6)
  1. SODIUM CHLORIDE [Concomitant]
  2. TRAZODONE HCL [Concomitant]
  3. NASAL SPRAY (ALL OTHER THERAPEUTIC PRODUCTS) [Concomitant]
  4. REBIF [Suspect]
     Indication: MULTIPLE SCLEROSIS
     Dosage: 44 MCG, 3 IN 1 WK, SUBCUTANEOUS
     Route: 058
     Dates: start: 20091204
  5. SINGULAIR [Concomitant]
  6. VALIUM [Concomitant]

REACTIONS (15)
  - BACK PAIN [None]
  - SUICIDAL IDEATION [None]
  - PAIN IN EXTREMITY [None]
  - ANTISOCIAL PERSONALITY DISORDER [None]
  - NECK PAIN [None]
  - VISION BLURRED [None]
  - MUSCULAR WEAKNESS [None]
  - ARTHRALGIA [None]
  - CENTRAL NERVOUS SYSTEM LESION [None]
  - GAIT DISTURBANCE [None]
  - HYPOAESTHESIA [None]
  - PARAESTHESIA [None]
  - DIZZINESS [None]
  - PAIN [None]
  - ANXIETY [None]
